FAERS Safety Report 16124541 (Version 1)
Quarter: 2019Q1

REPORT INFORMATION
  Report Type: Spontaneous
  Country: FR (occurrence: FR)
  Receive Date: 20190327
  Receipt Date: 20190327
  Transmission Date: 20190418
  Serious: Yes (Hospitalization, Other)
  Sender: FDA-Public Use
  Company Number: FR-PFIZER INC-2019126154

PATIENT
  Age: 72 Year
  Sex: Female

DRUGS (2)
  1. ZOLOFT [Suspect]
     Active Substance: SERTRALINE HYDROCHLORIDE
     Dosage: 100 MG, 1X/DAY
     Route: 048
  2. ZOLOFT [Suspect]
     Active Substance: SERTRALINE HYDROCHLORIDE
     Indication: DEPRESSION
     Dosage: 100 MG, 2X/DAY
     Route: 048

REACTIONS (8)
  - Subdural haematoma [Unknown]
  - Cerebral palsy [Unknown]
  - Drug withdrawal syndrome [Unknown]
  - Peripheral coldness [Unknown]
  - Somnambulism [Unknown]
  - Anxiety [Unknown]
  - Fall [Unknown]
  - Panic reaction [Unknown]

NARRATIVE: CASE EVENT DATE: 20190321
